FAERS Safety Report 16586708 (Version 2)
Quarter: 2019Q3

REPORT INFORMATION
  Report Type: Report from Study
  Country: KR (occurrence: KR)
  Receive Date: 20190717
  Receipt Date: 20190722
  Transmission Date: 20191004
  Serious: Yes (Hospitalization)
  Sender: FDA-Public Use
  Company Number: KR-SA-2019SA189043

PATIENT
  Age: 64 Year
  Sex: Male

DRUGS (8)
  1. AFLIBERCEPT [Suspect]
     Active Substance: AFLIBERCEPT
     Indication: COLORECTAL CANCER METASTATIC
     Dosage: 219.28 MG (WEEK 15), QCY
     Route: 065
     Dates: start: 20190226, end: 20190226
  2. AFLIBERCEPT [Suspect]
     Active Substance: AFLIBERCEPT
     Dosage: 219.28 MG (WEEK 1), QCY
     Route: 065
     Dates: start: 20181106, end: 20181106
  3. LEUCOVORIN. [Suspect]
     Active Substance: LEUCOVORIN
     Indication: COLORECTAL CANCER METASTATIC
     Dosage: 238.5 MG (WEEK 15), QCY
     Route: 065
     Dates: start: 20190226, end: 20190226
  4. LEUCOVORIN. [Suspect]
     Active Substance: LEUCOVORIN
     Dosage: 318 MG (WEEK 1), QCY
     Route: 065
     Dates: start: 20181106, end: 20181106
  5. IRINOTECAN [Suspect]
     Active Substance: IRINOTECAN
     Dosage: 286.2 MG (WEEK 1), QCY
     Route: 065
     Dates: start: 20181106, end: 20181106
  6. FLUOROURACIL. [Suspect]
     Active Substance: FLUOROURACIL
     Indication: COLORECTAL CANCER METASTATIC
     Dosage: 3339 MG (WEEK 15), QCY
     Route: 065
     Dates: start: 20190226, end: 20190226
  7. IRINOTECAN [Suspect]
     Active Substance: IRINOTECAN
     Indication: COLORECTAL CANCER METASTATIC
     Dosage: 214.65 MG (WEEK 15), QCY
     Route: 065
     Dates: start: 20190226, end: 20190226
  8. FLUOROURACIL. [Suspect]
     Active Substance: FLUOROURACIL
     Dosage: 4452 MG (WEEK 1), QCY
     Route: 065
     Dates: start: 20181106, end: 20181106

REACTIONS (2)
  - Pyrexia [Recovered/Resolved]
  - Jaundice [Recovering/Resolving]

NARRATIVE: CASE EVENT DATE: 20190405
